FAERS Safety Report 23547105 (Version 1)
Quarter: 2024Q1

REPORT INFORMATION
  Report Type: Spontaneous
  Country: ES (occurrence: ES)
  Receive Date: 20240221
  Receipt Date: 20240221
  Transmission Date: 20240410
  Serious: Yes (Other)
  Sender: FDA-Public Use
  Company Number: None

PATIENT
  Age: 89 Year
  Sex: Female

DRUGS (8)
  1. DONEPEZIL [Suspect]
     Active Substance: DONEPEZIL
     Indication: Cognitive disorder
     Dosage: (2780A)
     Route: 065
     Dates: start: 20231129, end: 20231206
  2. DONEPEZIL [Suspect]
     Active Substance: DONEPEZIL
     Indication: Cognitive disorder
     Dosage: (2780A)
     Route: 048
     Dates: start: 20230510, end: 20231128
  3. DONEPEZIL [Suspect]
     Active Substance: DONEPEZIL
     Indication: Cognitive disorder
     Dosage: (2780A)
     Route: 048
     Dates: start: 20231207
  4. PREGABALIN [Concomitant]
     Active Substance: PREGABALIN
     Indication: Product used for unknown indication
     Dosage: 25 MG HARD CAPSULES EFG, 56 CAPSULES
     Route: 048
     Dates: start: 20190527
  5. METFORMIN HYDROCHLORIDE\SITAGLIPTIN PHOSPHATE [Concomitant]
     Active Substance: METFORMIN HYDROCHLORIDE\SITAGLIPTIN PHOSPHATE
     Indication: Product used for unknown indication
     Dosage: 50 MG/1000 MG FILM-COATED TABLETS, 56 TABLETS
     Route: 048
     Dates: start: 20231020
  6. DEPRAX [Concomitant]
     Indication: Product used for unknown indication
     Dosage: 100 MG EFG FILM-COATED TABLETS, 60 TABLETS
     Route: 048
     Dates: start: 20230511
  7. LEVOTHYROXINE SODIUM [Concomitant]
     Active Substance: LEVOTHYROXINE SODIUM
     Indication: Product used for unknown indication
     Dosage: 88 MICROGRAMS TABLETS, 100 TABLETS
     Route: 048
     Dates: start: 20150218
  8. ENALAPRIL MALEATE\HYDROCHLOROTHIAZIDE [Concomitant]
     Active Substance: ENALAPRIL MALEATE\HYDROCHLOROTHIAZIDE
     Indication: Product used for unknown indication
     Dosage: STADA 20/12.5 MG EFG TABLETS, 28 TABLETS
     Route: 048
     Dates: start: 20160125

REACTIONS (2)
  - Tremor [Recovered/Resolved]
  - Hallucination, visual [Recovered/Resolved]

NARRATIVE: CASE EVENT DATE: 20231129
